FAERS Safety Report 4684211-6 (Version None)
Quarter: 2005Q2

REPORT INFORMATION
  Report Type: 
  Country: None (occurrence: None)
  Receive Date: 20050531
  Receipt Date: 20041222
  Transmission Date: 20051028
  Serious: Yes (Hospitalization)
  Sender: FDA-Public Use
  Company Number: US_0412108927

PATIENT
  Age: 77 Year
  Sex: Male
  Weight: 77 kg

DRUGS (7)
  1. ZYPREXA [Suspect]
     Indication: AGITATION
     Dosage: 2.5 MG/ 1 AT BEDTIME
     Dates: start: 20041112, end: 20041201
  2. ZYPREXA [Suspect]
     Indication: DEMENTIA ALZHEIMER'S TYPE
     Dosage: 2.5 MG/ 1 AT BEDTIME
     Dates: start: 20041112, end: 20041201
  3. ARICEPT [Concomitant]
  4. NAMENDA (MEMANTINE HYDROCHLORIDE) [Concomitant]
  5. METOPROLOL [Concomitant]
  6. LOVASTATIN [Concomitant]
  7. TRIAMETERENE/HYDROCHLOROTIAZIDE [Concomitant]

REACTIONS (4)
  - ASTHENIA [None]
  - DYSKINESIA [None]
  - HEART RATE DECREASED [None]
  - SYNCOPE [None]
